FAERS Safety Report 6491990-4 (Version None)
Quarter: 2009Q4

REPORT INFORMATION
  Report Type: 
  Country: None (occurrence: None)
  Receive Date: 20091208
  Receipt Date: 20091123
  Transmission Date: 20100525
  Serious: Yes (Other)
  Sender: FDA-Public Use
  Company Number: IDA-00298

PATIENT
  Sex: Male

DRUGS (2)
  1. PROPRANOLOL [Suspect]
     Dosage: 20 MG DAILY / DOSE TEXT: 280 MG/DL AT BIRTH TRANSPLACENTAL
     Route: 064
  2. ADENOSINE [Concomitant]

REACTIONS (4)
  - FOETAL GROWTH RETARDATION [None]
  - MATERNAL DRUGS AFFECTING FOETUS [None]
  - SMALL FOR DATES BABY [None]
  - UMBILICAL MALFORMATION [None]
